FAERS Safety Report 18087183 (Version 1)
Quarter: 2020Q3

REPORT INFORMATION
  Report Type: Spontaneous
  Country: US (occurrence: US)
  Receive Date: 20200729
  Receipt Date: 20200729
  Transmission Date: 20201103
  Serious: Yes (Other)
  Sender: FDA-Public Use
  Company Number: None

PATIENT
  Age: 70 Year
  Sex: Female
  Weight: 49.95 kg

DRUGS (4)
  1. METFORMIN HYDROCHLORIDE EXTENDED?RELEASE TABLETS [Suspect]
     Active Substance: METFORMIN HYDROCHLORIDE
     Indication: DIABETES MELLITUS
     Dosage: ?          QUANTITY:360 TABLET(S);?
     Route: 048
     Dates: start: 20200101, end: 20200501
  2. SYNJARDY [Concomitant]
     Active Substance: EMPAGLIFLOZIN\METFORMIN HYDROCHLORIDE
  3. LEVOTHYROXIN [Concomitant]
     Active Substance: LEVOTHYROXINE
  4. GLUCOSE METER AND STRIPS [Concomitant]

REACTIONS (6)
  - Headache [None]
  - Myalgia [None]
  - Recalled product administered [None]
  - Pain [None]
  - Gastric disorder [None]
  - Muscular weakness [None]

NARRATIVE: CASE EVENT DATE: 20200103
